FAERS Safety Report 25805463 (Version 2)
Quarter: 2025Q4

REPORT INFORMATION
  Report Type: Spontaneous
  Country: US (occurrence: US)
  Receive Date: 20250916
  Receipt Date: 20251017
  Transmission Date: 20260118
  Serious: No
  Sender: ADAMAS PHARMA
  Company Number: US-002147023-ADM202504-001180

PATIENT
  Sex: Female

DRUGS (1)
  1. GOCOVRI [Suspect]
     Active Substance: AMANTADINE
     Indication: Product used for unknown indication
     Dosage: NOT PROVIDED

REACTIONS (2)
  - Loss of personal independence in daily activities [Unknown]
  - Therapy cessation [Unknown]
